FAERS Safety Report 24246400 (Version 1)
Quarter: 2024Q3

REPORT INFORMATION
  Report Type: Spontaneous
  Country: US (occurrence: US)
  Receive Date: 20240825
  Receipt Date: 20240825
  Transmission Date: 20241017
  Serious: Yes (Hospitalization, Other)
  Sender: XELLIA PHARMACEUTICALS
  Company Number: US-Axellia-005318

PATIENT
  Age: 45 Year
  Sex: Male

DRUGS (4)
  1. VANCOMYCIN [Suspect]
     Active Substance: VANCOMYCIN
     Indication: Cellulitis
  2. ACYCLOVIR [Concomitant]
     Active Substance: ACYCLOVIR
     Indication: Monkeypox
  3. TECOVIRIMAT [Concomitant]
     Active Substance: TECOVIRIMAT
     Indication: Monkeypox
  4. CEFTRIAXONE [Concomitant]
     Active Substance: CEFTRIAXONE\CEFTRIAXONE SODIUM
     Indication: Cellulitis

REACTIONS (1)
  - Kounis syndrome [Recovered/Resolved]
